FAERS Safety Report 16608625 (Version 2)
Quarter: 2019Q3

REPORT INFORMATION
  Report Type: Spontaneous
  Country: US (occurrence: US)
  Receive Date: 20190722
  Receipt Date: 20190906
  Transmission Date: 20191004
  Serious: No
  Sender: FDA-Public Use
  Company Number: US-PFIZER INC-2019307657

PATIENT
  Age: 63 Year
  Sex: Female
  Weight: 90.7 kg

DRUGS (3)
  1. CYCLOBENZAPRINE HCL [Concomitant]
     Active Substance: CYCLOBENZAPRINE HYDROCHLORIDE
     Indication: MUSCLE RELAXANT THERAPY
     Dosage: 10 MG, (EVERY NIGHT/ AT BEDTIME)
  2. XALATAN [Suspect]
     Active Substance: LATANOPROST
     Indication: GLAUCOMA
     Dosage: 2 GTT, UNK (125MCG/2.5MG, ONE DROP EACH EYE AT BEDTIME, SOMETIMES DO DURING DAY)
  3. XALATAN [Suspect]
     Active Substance: LATANOPROST
     Dosage: UNK, AS NEEDED

REACTIONS (3)
  - Intentional product misuse [Unknown]
  - Amnesia [Unknown]
  - Overdose [Unknown]
